FAERS Safety Report 8923419 (Version 1)
Quarter: 2012Q4

REPORT INFORMATION
  Report Type: 
  Country: US (occurrence: US)
  Receive Date: 20121124
  Receipt Date: 20121124
  Transmission Date: 20130627
  Serious: Yes (Other)
  Sender: FDA-Public Use
  Company Number: US-BAYER-2012-121926

PATIENT
  Age: 69 Year
  Sex: Female
  Weight: 58.96 kg

DRUGS (2)
  1. ASPIRIN [Suspect]
     Indication: BACK ACHE
     Dosage: 1 DF, Once Daily with Food
     Route: 048
     Dates: start: 201005, end: 20100527
  2. ASPIRIN [Suspect]
     Indication: SLEEP DISORDER THERAPY

REACTIONS (4)
  - Haematemesis [Recovered/Resolved]
  - Blood count abnormal [Recovered/Resolved]
  - Asthenia [Recovered/Resolved]
  - Off label use [Recovered/Resolved]
